FAERS Safety Report 8777365 (Version 1)
Quarter: 2012Q4

REPORT INFORMATION
  Report Type: 
  Country: ES (occurrence: ES)
  Receive Date: 20120911
  Receipt Date: 20120911
  Transmission Date: 20130627
  Serious: Yes (Hospitalization)
  Sender: FDA-Public Use
  Company Number: ES-ROXANE LABORATORIES, INC.-2012-RO-01821RO

PATIENT
  Age: 47 Year
  Sex: Female

DRUGS (3)
  1. CLARITHROMYCIN [Suspect]
     Indication: HELICOBACTER INFECTION
  2. AMOXICILLIN [Suspect]
     Indication: HELICOBACTER INFECTION
  3. OMEPRAZOLE [Suspect]
     Indication: HELICOBACTER INFECTION

REACTIONS (2)
  - Bipolar I disorder [Not Recovered/Not Resolved]
  - Mania [Recovered/Resolved]
